FAERS Safety Report 16661441 (Version 1)
Quarter: 2019Q3

REPORT INFORMATION
  Report Type: Spontaneous
  Country: US (occurrence: US)
  Receive Date: 20190619
  Receipt Date: 20190619
  Transmission Date: 20191004
  Serious: Yes (Death)
  Sender: FDA-Public Use
  Company Number: None

PATIENT
  Age: 68 Year
  Sex: Male

DRUGS (1)
  1. SUTENT [Suspect]
     Active Substance: SUNITINIB MALATE
     Indication: GASTROINTESTINAL STROMAL TUMOUR
     Dosage: 1 CAP 1 DAILY FOR 2 WKS THEN OFF FOR 1 WK
     Dates: start: 20190326

REACTIONS (1)
  - Death [None]

NARRATIVE: CASE EVENT DATE: 20190612
